FAERS Safety Report 10778828 (Version 5)
Quarter: 2020Q2

REPORT INFORMATION
  Report Type: Spontaneous
  Country: AT (occurrence: AT)
  Receive Date: 20150210
  Receipt Date: 20200408
  Transmission Date: 20200713
  Serious: Yes (Hospitalization)
  Sender: FDA-Public Use
  Company Number: AT-AMGEN-AUTCT2014102620

PATIENT
  Age: 71 Year
  Sex: Female

DRUGS (16)
  1. LORNOXICAM [Concomitant]
     Active Substance: LORNOXICAM
     Indication: RHEUMATOID ARTHRITIS
     Dosage: 8 MILLIGRAM, 2X/DAY
     Route: 048
     Dates: start: 20090821, end: 20121011
  2. PREDNISOLONE. [Concomitant]
     Active Substance: PREDNISOLONE
     Indication: ERYTHEMA MULTIFORME
     Dosage: 2.5 MILLIGRAM, 1X/DAY
     Route: 048
     Dates: start: 20120808, end: 20121011
  3. FOLIC ACID. [Concomitant]
     Active Substance: FOLIC ACID
     Dosage: 5 MILLIGRAM, 2X/WEEK
     Route: 048
  4. ACICLOVIR [Concomitant]
     Active Substance: ACYCLOVIR
     Dosage: 100 MG, 2X/DAY
     Route: 048
     Dates: start: 20130225, end: 20130310
  5. OMEPRAZOLE. [Concomitant]
     Active Substance: OMEPRAZOLE
     Dosage: 40 MG, 1X/DAY
     Route: 048
     Dates: start: 20090821
  6. ACICLOVIR [Concomitant]
     Active Substance: ACYCLOVIR
     Indication: HERPES ZOSTER
     Dosage: 100 MG, 3X/DAY
     Route: 048
     Dates: start: 20130114, end: 20130224
  7. ACICLOVIR [Concomitant]
     Active Substance: ACYCLOVIR
     Dosage: 250 MG, 3X/DAY
     Route: 042
     Dates: start: 20130102, end: 20130107
  8. CALCIUM [Concomitant]
     Active Substance: CALCIUM
     Dosage: UNK
  9. LORNOXICAM [Concomitant]
     Active Substance: LORNOXICAM
     Dosage: 8 MILLIGRAM, 2X/DAY
     Route: 048
     Dates: start: 20121012, end: 20121031
  10. PREDNISOLONE. [Concomitant]
     Active Substance: PREDNISOLONE
     Indication: RHEUMATOID ARTHRITIS
     Dosage: 5 MILLIGRAM, AS NEEDED
     Route: 048
     Dates: start: 20120801, end: 20120807
  11. BANEOCIN [BACITRACIN;NEOMYCIN SULFATE] [Concomitant]
     Indication: HERPES ZOSTER
     Dosage: UNK, 3X/DAY
     Route: 062
     Dates: start: 20130102, end: 20130107
  12. PARACETAMOL [Concomitant]
     Active Substance: ACETAMINOPHEN
     Indication: HERPES ZOSTER
     Dosage: 1000 MG, 1X/DAY
     Route: 042
     Dates: start: 20130102, end: 20130113
  13. ETANERCEPT [Suspect]
     Active Substance: ETANERCEPT
     Indication: RHEUMATOID ARTHRITIS
     Dosage: 50 MILLIGRAM, WEEKLY (LAST DOSE PRIOR TO SAE 30OCT2014)
     Route: 058
     Dates: end: 20141030
  14. SULFASALAZINE DELAYED-RELEASE [Concomitant]
     Active Substance: SULFASALAZINE
     Indication: RHEUMATOID ARTHRITIS
     Dosage: 3000 MILLIGRAM, 1X/DAY
     Route: 048
     Dates: start: 20140712
  15. LORNOXICAM [Concomitant]
     Active Substance: LORNOXICAM
     Dosage: 8 MILLIGRAM, AS NEEDED
     Route: 048
     Dates: start: 20121101
  16. BANEOCIN [BACITRACIN ZINC;NEOMYCIN SULFATE] [Concomitant]
     Indication: HERPES ZOSTER
     Dosage: UNK, 3X/DAY
     Route: 062
     Dates: start: 20130102, end: 20130107

REACTIONS (1)
  - Dermatitis [Recovered/Resolved]

NARRATIVE: CASE EVENT DATE: 20141106
